FAERS Safety Report 5163341-9 (Version None)
Quarter: 2006Q4

REPORT INFORMATION
  Report Type: 
  Country: None (occurrence: None)
  Receive Date: 20061204
  Receipt Date: 20061106
  Transmission Date: 20070319
  Serious: Yes (Hospitalization)
  Sender: FDA-Public Use
  Company Number: PHEH2006US13792

PATIENT
  Age: 62 Year
  Sex: Male
  Weight: 97.959 kg

DRUGS (5)
  1. ZELNORM [Suspect]
     Indication: IRRITABLE BOWEL SYNDROME
     Dosage: 6 MG, BID
     Route: 048
     Dates: start: 20061023, end: 20061102
  2. TOPROL-XL [Concomitant]
     Indication: HYPERTENSION
     Dosage: 50 MG, QD
     Route: 048
  3. SIMVASTATIN [Concomitant]
     Indication: HYPERLIPIDAEMIA
     Dosage: 20 MG, QD
     Route: 048
  4. CITRUCEL [Concomitant]
     Dosage: 1 CAPFUL, QD
  5. LOTENSIN [Concomitant]
     Indication: HYPERTENSION
     Dosage: 10 MG, QD
     Route: 048

REACTIONS (5)
  - ABDOMINAL PAIN LOWER [None]
  - COLOSTOMY [None]
  - DIVERTICULITIS [None]
  - INTESTINAL PERFORATION [None]
  - INTESTINAL RESECTION [None]
